FAERS Safety Report 7937386-7 (Version None)
Quarter: 2011Q4

REPORT INFORMATION
  Report Type: 
  Country: None (occurrence: None)
  Receive Date: 20111123
  Receipt Date: 20111118
  Transmission Date: 20120403
  Serious: Yes (Life-Threatening, Hospitalization)
  Sender: FDA-Public Use
  Company Number: US-BAYER-2011-032533

PATIENT
  Age: 29 Year
  Sex: Female
  Weight: 59 kg

DRUGS (10)
  1. ALBERTEROL [Concomitant]
     Dosage: UNK
     Dates: start: 20090226
  2. BENTYL [Concomitant]
  3. PROAIR HFA [Concomitant]
     Indication: ASTHMA
     Dosage: UNK UNK, PRN
     Dates: start: 20010101
  4. SUDAFED 12 HOUR [Concomitant]
     Dosage: UNK
     Dates: start: 20090730
  5. AMOXICILLIN [Concomitant]
     Dosage: UNK UNK, PRN
     Dates: start: 20010101
  6. YASMIN [Suspect]
     Indication: PREMENSTRUAL SYNDROME
  7. IBUPROFEN [Concomitant]
     Dosage: 600 MG, UNK
     Dates: start: 20090526
  8. YASMIN [Suspect]
     Indication: CONTRACEPTION
     Dosage: UNK
     Dates: start: 20090401, end: 20090820
  9. NSAID'S [Concomitant]
     Dosage: UNK UNK, PRN
     Dates: start: 19910101
  10. ADVAIR DISKUS 100/50 [Concomitant]
     Dosage: UNK UNK, PRN
     Dates: start: 20010101

REACTIONS (10)
  - ARTERIAL THROMBOSIS [None]
  - ARTERIAL OCCLUSIVE DISEASE [None]
  - ABDOMINAL PAIN [None]
  - THROMBOSIS [None]
  - PAIN IN EXTREMITY [None]
  - CYANOSIS [None]
  - PAIN [None]
  - PERIPHERAL COLDNESS [None]
  - CHEST PAIN [None]
  - MUSCULOSKELETAL PAIN [None]
